FAERS Safety Report 9821530 (Version 3)
Quarter: 2014Q2

REPORT INFORMATION
  Report Type: Spontaneous
  Country: AR (occurrence: AR)
  Receive Date: 20140116
  Receipt Date: 20140515
  Transmission Date: 20141212
  Serious: Yes (Other)
  Sender: FDA-Public Use
  Company Number: AR-AMGEN-ARGSP2014002927

PATIENT
  Age: 62 Year
  Sex: Female

DRUGS (4)
  1. ENBREL [Suspect]
     Indication: RHEUMATOID ARTHRITIS
     Dosage: 50 MG, 1 DOSE EVERY 10 DAYS
     Route: 058
     Dates: start: 20010707, end: 201310
  2. ENBREL [Suspect]
     Dosage: 50 MG, 1 DOSE EVERY 10 DAYS
     Route: 058
     Dates: start: 201311, end: 201401
  3. DELTISONA B                        /00049601/ [Concomitant]
     Indication: RHEUMATOID ARTHRITIS
     Dosage: UNK
     Route: 048
  4. NAPROXEN [Concomitant]
     Dosage: UNK

REACTIONS (4)
  - Device dislocation [Not Recovered/Not Resolved]
  - Bone erosion [Not Recovered/Not Resolved]
  - Joint dislocation [Not Recovered/Not Resolved]
  - Limb injury [Not Recovered/Not Resolved]
